FAERS Safety Report 11251089 (Version 2)
Quarter: 2015Q3

REPORT INFORMATION
  Report Type: Spontaneous
  Country: US (occurrence: US)
  Receive Date: 20150708
  Receipt Date: 20150803
  Transmission Date: 20151125
  Serious: Yes (Other)
  Sender: FDA-Public Use
  Company Number: US-ELI_LILLY_AND_COMPANY-US201003005795

PATIENT
  Age: 45 Year
  Sex: Female

DRUGS (9)
  1. EFFEXOR [Concomitant]
     Active Substance: VENLAFAXINE HYDROCHLORIDE
     Dosage: 300 MG, UNK
  2. WELLBUTRIN [Concomitant]
     Active Substance: BUPROPION HYDROCHLORIDE
     Dosage: 300 MG, UNK
  3. PROZAC [Suspect]
     Active Substance: FLUOXETINE HYDROCHLORIDE
  4. ABILIFY [Concomitant]
     Active Substance: ARIPIPRAZOLE
  5. ZYPREXA [Suspect]
     Active Substance: OLANZAPINE
     Indication: DEPRESSION
     Dosage: 7.5 MG, UNK
     Dates: start: 2010
  6. VYVANSE [Concomitant]
     Active Substance: LISDEXAMFETAMINE DIMESYLATE
     Dosage: 90 MG, UNK
  7. SUBOXONE [Concomitant]
     Active Substance: BUPRENORPHINE HYDROCHLORIDE\NALOXONE HYDROCHLORIDE
     Dosage: 2 MG, UNK
  8. KLONOPIN [Concomitant]
     Active Substance: CLONAZEPAM
  9. GEODON [Concomitant]
     Active Substance: ZIPRASIDONE HYDROCHLORIDE\ZIPRASIDONE MESYLATE

REACTIONS (17)
  - Derealisation [Unknown]
  - Activities of daily living impaired [Unknown]
  - Weight increased [Recovering/Resolving]
  - Blood triglycerides increased [Unknown]
  - Feeling hot [Unknown]
  - Blood cholesterol increased [Unknown]
  - Anxiety [Unknown]
  - Depressed mood [Unknown]
  - Increased appetite [Unknown]
  - Hunger [Unknown]
  - Libido decreased [Unknown]
  - Fear [Unknown]
  - Feeling abnormal [Unknown]
  - Dyspnoea [Unknown]
  - Obesity [Recovering/Resolving]
  - Discomfort [Unknown]
  - Drug intolerance [Unknown]
